FAERS Safety Report 22262714 (Version 3)
Quarter: 2023Q4

REPORT INFORMATION
  Report Type: Spontaneous
  Country: US (occurrence: US)
  Receive Date: 20230428
  Receipt Date: 20231127
  Transmission Date: 20240110
  Serious: Yes (Other)
  Sender: FDA-Public Use
  Company Number: US-BRISTOL-MYERS SQUIBB COMPANY-2023-060952

PATIENT
  Age: 72 Year
  Sex: Female
  Weight: 79.83 kg

DRUGS (3)
  1. REVLIMID [Suspect]
     Active Substance: LENALIDOMIDE
     Indication: Plasma cell myeloma
     Dosage: 3W, 1W OFF
     Route: 048
  2. REVLIMID [Suspect]
     Active Substance: LENALIDOMIDE
     Dosage: FREQUENCY: 21 D ON 7D OFF
     Route: 048
     Dates: start: 20230401
  3. REVLIMID [Suspect]
     Active Substance: LENALIDOMIDE
     Dosage: 1-21 OF 28D CYCLE
     Route: 048

REACTIONS (7)
  - Stomatitis [Unknown]
  - Oropharyngeal pain [Unknown]
  - Blood pressure decreased [Not Recovered/Not Resolved]
  - Dizziness postural [Not Recovered/Not Resolved]
  - Vomiting [Unknown]
  - Nausea [Unknown]
  - Neuropathy peripheral [Unknown]
